FAERS Safety Report 21315212 (Version 1)
Quarter: 2022Q3

REPORT INFORMATION
  Report Type: Spontaneous
  Country: US (occurrence: US)
  Receive Date: 20220909
  Receipt Date: 20220909
  Transmission Date: 20221026
  Serious: Yes (Hospitalization, Other)
  Sender: FDA-Public Use
  Company Number: US-PROCTER_AND_GAMBLE-GS22084770

PATIENT
  Age: 29 Year
  Sex: Male

DRUGS (1)
  1. ALCOHOL [Suspect]
     Active Substance: ALCOHOL
     Dosage: 50 CC INTO IV LINE
     Route: 042

REACTIONS (22)
  - Acute kidney injury [Unknown]
  - Nephropathy toxic [Recovered/Resolved]
  - Haematuria [Unknown]
  - Nausea [Unknown]
  - Vomiting [Unknown]
  - Diarrhoea [Unknown]
  - Catheter site pain [Unknown]
  - Catheter site erythema [Unknown]
  - Blood creatinine increased [Recovered/Resolved]
  - Blood bicarbonate decreased [Recovering/Resolving]
  - Haemoglobin increased [Unknown]
  - Urine analysis abnormal [Unknown]
  - Red blood cells urine positive [Unknown]
  - Blood lactate dehydrogenase increased [Unknown]
  - Oliguria [Recovered/Resolved]
  - Pigment nephropathy [Unknown]
  - Haemolysis [Unknown]
  - Renal disorder [Unknown]
  - Renal tubular injury [Unknown]
  - Incorrect route of product administration [Unknown]
  - Intentional product use issue [Unknown]
  - Exposure via blood [Unknown]
